FAERS Safety Report 10678650 (Version 2)
Quarter: 2015Q1

REPORT INFORMATION
  Report Type: Spontaneous
  Country: JP (occurrence: None)
  Receive Date: 20141223
  Receipt Date: 20150324
  Transmission Date: 20150720
  Serious: Yes (Hospitalization, Other)
  Sender: FDA-Public Use
  Company Number: 2014-20993

PATIENT
  Age: 78 Year
  Sex: Female

DRUGS (2)
  1. EYLEA [Suspect]
     Active Substance: AFLIBERCEPT
     Indication: AGE-RELATED MACULAR DEGENERATION
     Dosage: TOTAL OF 7 INJECTIONS 2 MG, UNK, INTRAOCULAR
     Route: 031
     Dates: start: 20130312, end: 20130312
  2. EYLEA [Suspect]
     Active Substance: AFLIBERCEPT
     Indication: POLYPOIDAL CHOROIDAL VASCULOPATHY
     Dosage: TOTAL OF 7 INJECTIONS 2 MG, UNK, INTRAOCULAR
     Route: 031
     Dates: start: 20130312, end: 20130312

REACTIONS (5)
  - Cataract [None]
  - Posterior capsule rupture [None]
  - Blindness unilateral [None]
  - Post procedural complication [None]
  - Intraocular lens implant [None]

NARRATIVE: CASE EVENT DATE: 20140213
